FAERS Safety Report 12972992 (Version 1)
Quarter: 2016Q4

REPORT INFORMATION
  Report Type: Spontaneous
  Country: US (occurrence: US)
  Receive Date: 20161124
  Receipt Date: 20161124
  Transmission Date: 20170207
  Serious: No
  Sender: FDA-Public Use
  Company Number: US-PFIZER INC-2016540646

PATIENT
  Sex: Female

DRUGS (1)
  1. XELJANZ XR [Suspect]
     Active Substance: TOFACITINIB CITRATE
     Indication: RHEUMATOID ARTHRITIS
     Dosage: 11 MG, DAILY

REACTIONS (11)
  - Arthralgia [Unknown]
  - Pelvic fluid collection [Recovered/Resolved]
  - Condition aggravated [Unknown]
  - Neck pain [Recovered/Resolved]
  - Fatigue [Unknown]
  - Musculoskeletal stiffness [Recovered/Resolved]
  - Arthralgia [Recovered/Resolved]
  - Abdominal pain lower [Recovered/Resolved]
  - Dyspepsia [Unknown]
  - Joint stiffness [Unknown]
  - Musculoskeletal pain [Recovered/Resolved]
